FAERS Safety Report 16821406 (Version 1)
Quarter: 2019Q3

REPORT INFORMATION
  Report Type: Spontaneous
  Country: US (occurrence: US)
  Receive Date: 20190918
  Receipt Date: 20190918
  Transmission Date: 20191005
  Serious: Yes (Other)
  Sender: FDA-Public Use
  Company Number: US-ALIMERA SCIENCES INC.-US-IL-2017-003533

PATIENT

DRUGS (2)
  1. OZURDEX [Concomitant]
     Active Substance: DEXAMETHASONE
     Indication: INTRAOCULAR PRESSURE INCREASED
     Route: 031
  2. ILUVIEN [Suspect]
     Active Substance: FLUOCINOLONE ACETONIDE
     Indication: DIABETIC RETINAL OEDEMA
     Dosage: 0.25 ?G, QD
     Route: 031

REACTIONS (2)
  - Intraocular pressure increased [Unknown]
  - Glaucoma surgery [Unknown]
